FAERS Safety Report 14374217 (Version 1)
Quarter: 2018Q1

REPORT INFORMATION
  Report Type: Spontaneous
  Country: CN (occurrence: CN)
  Receive Date: 20180111
  Receipt Date: 20180111
  Transmission Date: 20180509
  Serious: Yes (Other)
  Sender: FDA-Public Use
  Company Number: CN-MERCK KGAA-2039883

PATIENT

DRUGS (1)
  1. NOVOTHYROX [Suspect]
     Active Substance: LEVOTHYROXINE SODIUM
     Indication: HYPOTHYROIDISM

REACTIONS (7)
  - Autism spectrum disorder [None]
  - Stereotypy [None]
  - Decreased eye contact [None]
  - Tri-iodothyronine free increased [None]
  - Fine motor skill dysfunction [None]
  - Cognitive disorder [None]
  - Maternal exposure during breast feeding [None]
